FAERS Safety Report 8758205 (Version 1)
Quarter: 2012Q4

REPORT INFORMATION
  Report Type: 
  Country: AT (occurrence: AT)
  Receive Date: 20120828
  Receipt Date: 20120828
  Transmission Date: 20130627
  Serious: Yes (Death, Life-Threatening)
  Sender: FDA-Public Use
  Company Number: AT-ASTRAZENECA-2012SE64552

PATIENT
  Age: 72 Year
  Sex: Male
  Weight: 124 kg

DRUGS (9)
  1. MEROPENEM [Suspect]
     Indication: PANCREATITIS ACUTE
     Route: 042
     Dates: start: 20120718, end: 20120724
  2. PANTOPRAZOLE [Suspect]
     Indication: ULCER
     Route: 042
     Dates: start: 20120417, end: 20120425
  3. NOVALGIN [Suspect]
     Indication: PAIN
     Route: 042
     Dates: start: 20120717, end: 20120719
  4. DIPIDOLOR [Concomitant]
     Route: 042
     Dates: start: 20120717, end: 20120720
  5. LOVENOX [Concomitant]
     Route: 058
     Dates: start: 20120717, end: 20120723
  6. ACTRAPID [Concomitant]
     Dates: start: 20120717
  7. RATIOGRASTIM [Concomitant]
     Dates: start: 20120720
  8. DIFLUCAN [Concomitant]
     Route: 042
     Dates: start: 20120721, end: 20120725
  9. RELISTOR [Concomitant]
     Route: 058

REACTIONS (4)
  - Agranulocytosis [Fatal]
  - Multi-organ failure [Fatal]
  - Septic shock [Fatal]
  - Thrombocytopenia [Not Recovered/Not Resolved]
